FAERS Safety Report 7360733-4 (Version None)
Quarter: 2011Q1

REPORT INFORMATION
  Report Type: 
  Country: None (occurrence: None)
  Receive Date: 20110318
  Receipt Date: 20110219
  Transmission Date: 20110831
  Serious: No
  Sender: FDA-Public Use
  Company Number: US-B.I. PHARMACEUTICALS,INC./RIDGEFIELD-2011-BP-06389BP

PATIENT
  Sex: Male

DRUGS (9)
  1. ATENOLOL [Concomitant]
  2. POTASSIUM [Concomitant]
  3. AMBIEN [Concomitant]
  4. DIOVAN [Concomitant]
  5. LASIX [Concomitant]
  6. PRADAXA [Concomitant]
     Indication: ATRIAL FIBRILLATION
     Dosage: 300 MG
     Route: 048
     Dates: start: 20101101
  7. FLOMAX [Suspect]
     Indication: PROSTATIC DISORDER
     Dosage: 0.4 MG
     Route: 048
     Dates: start: 20070101
  8. CLONIDINE [Concomitant]
  9. LIPITOR [Concomitant]

REACTIONS (4)
  - OEDEMA PERIPHERAL [None]
  - FATIGUE [None]
  - DEPRESSION [None]
  - ABDOMINAL PAIN UPPER [None]
